FAERS Safety Report 4552755-3 (Version None)
Quarter: 2005Q1

REPORT INFORMATION
  Report Type: 
  Country: None (occurrence: None)
  Receive Date: 20050114
  Receipt Date: 20050105
  Transmission Date: 20050727
  Serious: Yes (Other)
  Sender: FDA-Public Use
  Company Number: US-JNJFOC-20050101678

PATIENT
  Sex: Male

DRUGS (2)
  1. MOTRIN [Suspect]
     Route: 049
  2. MOTRIN [Suspect]
     Indication: DRUG USE FOR UNKNOWN INDICATION
     Route: 049

REACTIONS (2)
  - INTENTIONAL MISUSE [None]
  - LOSS OF CONSCIOUSNESS [None]
